FAERS Safety Report 5793624-0 (Version None)
Quarter: 2008Q2

REPORT INFORMATION
  Report Type: 
  Country: None (occurrence: None)
  Receive Date: 20080627
  Receipt Date: 20080618
  Transmission Date: 20081010
  Serious: Yes (Hospitalization, Other)
  Sender: FDA-Public Use
  Company Number: US-ROCHE-428836

PATIENT
  Sex: Female
  Weight: 72.6 kg

DRUGS (37)
  1. ACCUTANE [Suspect]
     Route: 048
     Dates: start: 20011010, end: 20011226
  2. ACCUTANE [Suspect]
     Route: 048
     Dates: start: 20020110, end: 20020403
  3. AZATHIOPRINE [Suspect]
     Indication: CROHN'S DISEASE
     Route: 065
     Dates: start: 20041227, end: 20050115
  4. DOXYCYCLINE [Concomitant]
     Indication: ACNE
     Route: 048
  5. THROAT LOZENGES [Concomitant]
     Indication: PHARYNGITIS
     Dates: start: 20020201
  6. DECONAMINE SR [Concomitant]
     Indication: UPPER RESPIRATORY TRACT INFECTION
     Dates: start: 20021009
  7. DECONAMINE SR [Concomitant]
     Dates: start: 20021009
  8. AUGMENTIN '125' [Concomitant]
     Indication: UPPER RESPIRATORY TRACT INFECTION
     Dates: start: 20021009
  9. AUGMENTIN '125' [Concomitant]
     Dates: start: 20021009
  10. HUMIBID [Concomitant]
     Indication: UPPER RESPIRATORY TRACT INFECTION
     Dates: start: 20021009
  11. FLONASE [Concomitant]
     Dates: start: 20031125
  12. ALLEGRA [Concomitant]
     Dates: start: 20031125
  13. ZITHROMAX [Concomitant]
     Indication: BRONCHITIS
     Dates: start: 20041113
  14. ROBITUSSIN [Concomitant]
     Indication: BRONCHITIS
     Dates: start: 20041113
  15. SUDAFED 12 HOUR [Concomitant]
     Indication: BRONCHITIS
     Dates: start: 20041113
  16. TYLENOL [Concomitant]
     Indication: BRONCHITIS
     Dosage: DOSING REGIMEN EVERY 4-6 HRS PRN.
     Route: 048
     Dates: start: 20041113
  17. LEVOFLOXACIN [Concomitant]
     Indication: PYELONEPHRITIS
     Dates: start: 20030703
  18. VICODIN [Concomitant]
     Indication: PYELONEPHRITIS
     Dates: start: 20030703
  19. VICODIN [Concomitant]
     Dates: start: 20030703
  20. MOTRIN [Concomitant]
     Indication: PYELONEPHRITIS
     Dates: start: 20030703
  21. PYRIDIUM [Concomitant]
     Indication: PYELONEPHRITIS
     Dates: start: 20030703
  22. EFFEXOR [Concomitant]
     Dates: start: 20031126
  23. KLONOPIN [Concomitant]
     Dates: start: 20051126
  24. ALESSE [Concomitant]
     Dates: start: 20031126
  25. ALESSE [Concomitant]
     Dates: start: 20031126
  26. PAXIL [Concomitant]
     Indication: DEPRESSION
  27. ROWASA [Concomitant]
  28. CIPRO [Concomitant]
     Route: 048
     Dates: start: 20050112
  29. ERYTHROMYCIN [Concomitant]
     Route: 047
     Dates: start: 20050112
  30. KENALOG [Concomitant]
     Dosage: DOSAGE REGIMEN TID PRN.
     Route: 061
     Dates: start: 20020109
  31. LOMOTIL [Concomitant]
     Route: 048
     Dates: start: 20011226
  32. LOMOTIL [Concomitant]
     Route: 048
     Dates: start: 20011226
  33. LOMOTIL [Concomitant]
     Route: 048
     Dates: start: 20011226
  34. SURFAK [Concomitant]
     Indication: CONSTIPATION
     Route: 048
     Dates: start: 20011206
  35. BACTROBAN [Concomitant]
     Dosage: DOSAGE REGIMEN REPORTED AS 2% GM.
     Route: 061
     Dates: start: 20011120
  36. TRI-LEVLEN 28 [Concomitant]
     Route: 048
     Dates: start: 20010320
  37. TRI-LEVLEN 28 [Concomitant]
     Route: 048
     Dates: start: 20010320

REACTIONS (13)
  - CROHN'S DISEASE [None]
  - DEPRESSION [None]
  - GENERALISED ANXIETY DISORDER [None]
  - HEADACHE [None]
  - INFLAMMATORY BOWEL DISEASE [None]
  - MALIGNANT MELANOMA [None]
  - MUSCULAR WEAKNESS [None]
  - MYALGIA [None]
  - NEPHRITIS INTERSTITIAL [None]
  - PAIN IN EXTREMITY [None]
  - PYELONEPHRITIS [None]
  - RENAL FAILURE ACUTE [None]
  - UVEITIS [None]
